FAERS Safety Report 5148167-4 (Version None)
Quarter: 2006Q4

REPORT INFORMATION
  Report Type: 
  Country: None (occurrence: None)
  Receive Date: 20061106
  Receipt Date: 20061023
  Transmission Date: 20070319
  Serious: Yes (Other)
  Sender: FDA-Public Use
  Company Number: 2006BH014390

PATIENT
  Sex: Female

DRUGS (3)
  1. VINORELBINE TARTRATE [Suspect]
     Indication: BREAST CANCER METASTATIC
     Dosage: 22 MG/M**2;IVBOL
     Route: 040
  2. FLUOROURACIL [Suspect]
     Indication: BREAST CANCER METASTATIC
     Dosage: 750 MG/M**2;IV
     Route: 042
  3. OXALIPLATIN [Suspect]
     Indication: BREAST CANCER METASTATIC
     Dosage: 130 MG/M**2;IV
     Route: 042

REACTIONS (3)
  - DIARRHOEA [None]
  - FEBRILE NEUTROPENIA [None]
  - VOMITING [None]
